FAERS Safety Report 24164812 (Version 4)
Quarter: 2024Q3

REPORT INFORMATION
  Report Type: Report from Study
  Country: US (occurrence: US)
  Receive Date: 20240801
  Receipt Date: 20240829
  Transmission Date: 20241016
  Serious: Yes (Other)
  Sender: ALEXION PHARMACEUTICALS
  Company Number: US-AstraZeneca-CH-00673896A

PATIENT
  Sex: Female

DRUGS (2)
  1. STRENSIQ [Suspect]
     Active Substance: ASFOTASE ALFA
     Indication: Hypophosphatasia
     Dosage: 116 MILLIGRAM
     Route: 065
     Dates: start: 20240718
  2. GABAPENTIN [Suspect]
     Active Substance: GABAPENTIN
     Indication: Product used for unknown indication
     Dosage: UNK
     Route: 065

REACTIONS (15)
  - Vitamin B6 decreased [Not Recovered/Not Resolved]
  - Feeling abnormal [Not Recovered/Not Resolved]
  - Cerebral disorder [Not Recovered/Not Resolved]
  - Crying [Not Recovered/Not Resolved]
  - Mood altered [Not Recovered/Not Resolved]
  - Anxiety [Unknown]
  - Sciatica [Not Recovered/Not Resolved]
  - Depression [Unknown]
  - Pain [Not Recovered/Not Resolved]
  - Nervous system disorder [Unknown]
  - Injection site mass [Unknown]
  - Injection site discolouration [Unknown]
  - Injection site erythema [Unknown]
  - Injection site pruritus [Unknown]
  - Balance disorder [Recovering/Resolving]
